FAERS Safety Report 5421546-3 (Version None)
Quarter: 2007Q3

REPORT INFORMATION
  Report Type: 
  Country: None (occurrence: None)
  Receive Date: 20070821
  Receipt Date: 20070813
  Transmission Date: 20080115
  Serious: Yes (Hospitalization, Other)
  Sender: FDA-Public Use
  Company Number: US-PFIZER INC-2007007816

PATIENT
  Sex: Male
  Weight: 90.7 kg

DRUGS (3)
  1. LIPITOR [Suspect]
     Indication: BLOOD CHOLESTEROL INCREASED
     Dates: start: 20070115, end: 20070101
  2. UNIVASC [Concomitant]
  3. ASPIRIN [Concomitant]
     Dates: start: 20070101

REACTIONS (7)
  - BLOOD PRESSURE INCREASED [None]
  - CHEST PAIN [None]
  - DRUG HYPERSENSITIVITY [None]
  - DYSPNOEA [None]
  - LUNG DISORDER [None]
  - PAIN IN EXTREMITY [None]
  - SWELLING [None]
